FAERS Safety Report 20475945 (Version 1)
Quarter: 2022Q1

REPORT INFORMATION
  Report Type: Spontaneous
  Country: US (occurrence: US)
  Receive Date: 20220215
  Receipt Date: 20220215
  Transmission Date: 20220423
  Serious: Yes (Other)
  Sender: FDA-Public Use
  Company Number: US-AMGEN-USASP2022022728

PATIENT
  Age: 66 Year
  Sex: Female

DRUGS (3)
  1. PROLIA [Suspect]
     Active Substance: DENOSUMAB
     Indication: Product used for unknown indication
     Dosage: UNK
     Route: 065
  2. PROLIA [Suspect]
     Active Substance: DENOSUMAB
  3. EVENITY [Suspect]
     Active Substance: ROMOSOZUMAB-AQQG
     Indication: Product used for unknown indication
     Dosage: UNK
     Route: 065
     Dates: start: 202110

REACTIONS (6)
  - Spinal compression fracture [Unknown]
  - Foot operation [Unknown]
  - Temporomandibular joint syndrome [Unknown]
  - Hip arthroplasty [Unknown]
  - Dental caries [Unknown]
  - Impaired healing [Unknown]

NARRATIVE: CASE EVENT DATE: 20170101
